FAERS Safety Report 4624391-1 (Version None)
Quarter: 2005Q1

REPORT INFORMATION
  Report Type: 
  Country: None (occurrence: None)
  Receive Date: 20050330
  Receipt Date: 20050330
  Transmission Date: 20050727
  Serious: Yes (Other)
  Sender: FDA-Public Use
  Company Number: None

PATIENT
  Sex: Female

DRUGS (2)
  1. LESCOL XL [Suspect]
     Dosage: 1 QD ORAL
     Route: 048
  2. ZETIA [Suspect]
     Dosage: 1 QD ORAL
     Route: 048

REACTIONS (1)
  - DIARRHOEA [None]
